FAERS Safety Report 15153454 (Version 24)
Quarter: 2021Q4

REPORT INFORMATION
  Report Type: Spontaneous
  Country: FR (occurrence: FR)
  Receive Date: 20180717
  Receipt Date: 20211112
  Transmission Date: 20220303
  Serious: Yes (Other)
  Sender: FDA-Public Use
  Company Number: FR-UCBSA-2018013909

PATIENT
  Sex: Female
  Weight: 77 kg

DRUGS (141)
  1. TRAMADOL [Suspect]
     Active Substance: TRAMADOL
     Indication: Diabetic neuropathy
     Dosage: 100 MILLIGRAM, QD
     Route: 065
     Dates: start: 20160930, end: 20170306
  2. TRAMADOL [Suspect]
     Active Substance: TRAMADOL
     Dosage: 50 MILLIGRAM, QD
     Route: 065
     Dates: start: 20160930, end: 20170306
  3. TRAMADOL [Suspect]
     Active Substance: TRAMADOL
     Dosage: 50 MILLIGRAM, QD
     Route: 065
     Dates: start: 20170306
  4. GABAPENTIN [Suspect]
     Active Substance: GABAPENTIN
     Indication: Diabetic neuropathy
     Dosage: 80 MG, QD
     Route: 048
     Dates: start: 20160930
  5. GABAPENTIN [Suspect]
     Active Substance: GABAPENTIN
     Dosage: 400 MILLIGRAM, QD
     Route: 048
     Dates: start: 20160930
  6. GABAPENTIN [Suspect]
     Active Substance: GABAPENTIN
     Dosage: 800 MILLIGRAM, QD
     Route: 048
     Dates: start: 20160930
  7. FOLIC ACID [Suspect]
     Active Substance: FOLIC ACID
     Indication: Normochromic normocytic anaemia
     Dosage: 5 MILLIGRAM, QD
     Route: 065
     Dates: start: 20170224
  8. FOLIC ACID [Suspect]
     Active Substance: FOLIC ACID
     Dosage: 5 MG, QD
     Route: 065
     Dates: start: 20170313
  9. FOLIC ACID [Suspect]
     Active Substance: FOLIC ACID
     Dosage: 5 MILLIGRAM, QD
     Route: 065
  10. FOLIC ACID [Suspect]
     Active Substance: FOLIC ACID
     Dosage: UNK
  11. ARIPIPRAZOLE [Suspect]
     Active Substance: ARIPIPRAZOLE
     Indication: Bipolar I disorder
     Dosage: 10 MG, QD
     Route: 065
     Dates: start: 20160930, end: 20170224
  12. ARIPIPRAZOLE [Suspect]
     Active Substance: ARIPIPRAZOLE
     Dosage: 10 MG, QD
     Route: 065
     Dates: start: 20160930
  13. GLICLAZIDE [Suspect]
     Active Substance: GLICLAZIDE
     Indication: Type 2 diabetes mellitus
     Dosage: 120 MG, QD
     Route: 065
     Dates: start: 20160930, end: 20170224
  14. GLICLAZIDE [Suspect]
     Active Substance: GLICLAZIDE
     Dosage: 120 MILLIGRAM, QD
     Route: 065
     Dates: start: 20170224
  15. AMITRIPTYLINE [Suspect]
     Active Substance: AMITRIPTYLINE
     Indication: Diabetic neuropathy
     Dosage: 2 DOSAGE FORM, QD
     Dates: start: 20160930
  16. AMOXICILLIN [Suspect]
     Active Substance: AMOXICILLIN
     Indication: Product used for unknown indication
     Dosage: 3 G, QD
     Route: 048
     Dates: start: 20170804, end: 20170811
  17. AMOXICILLIN [Suspect]
     Active Substance: AMOXICILLIN
     Dosage: 1 GRAM, QD
     Route: 065
     Dates: start: 20170804
  18. AMOXICILLIN [Suspect]
     Active Substance: AMOXICILLIN
     Dosage: 1 GRAM, QD
     Route: 065
     Dates: start: 20170811
  19. AMOXICILLIN [Suspect]
     Active Substance: AMOXICILLIN
     Dosage: UNK
  20. AMOXICILLIN [Suspect]
     Active Substance: AMOXICILLIN
     Dosage: 1 GRAM, QD
     Route: 048
     Dates: start: 201708, end: 20180811
  21. AMOXICILLIN [Suspect]
     Active Substance: AMOXICILLIN
     Dosage: 1 MILLIGRAM, QD
     Dates: start: 201708, end: 20180811
  22. AMOXICILLIN [Suspect]
     Active Substance: AMOXICILLIN
     Dosage: 3 G, QD
     Route: 065
     Dates: start: 20170811
  23. RAMIPRIL [Suspect]
     Active Substance: RAMIPRIL
     Indication: Hypertension
     Dosage: 2.5 MG, QD
     Route: 048
     Dates: start: 20160930, end: 20170224
  24. RAMIPRIL [Suspect]
     Active Substance: RAMIPRIL
     Dosage: 2.5 MILLIGRAM, QD
     Route: 065
     Dates: start: 20170224
  25. RAMIPRIL [Suspect]
     Active Substance: RAMIPRIL
     Dosage: 2.5 MILLIGRAM, QD
     Route: 048
     Dates: start: 20160930, end: 20170224
  26. METFORMIN [Suspect]
     Active Substance: METFORMIN HYDROCHLORIDE
     Indication: Type 2 diabetes mellitus
     Dosage: 850 MILLIGRAM, QD
     Route: 048
     Dates: start: 20170224
  27. METFORMIN [Suspect]
     Active Substance: METFORMIN HYDROCHLORIDE
     Dosage: 850 MILLIGRAM, QD
     Route: 065
     Dates: start: 20160930, end: 20170224
  28. METFORMIN [Suspect]
     Active Substance: METFORMIN HYDROCHLORIDE
     Dosage: 1700 MILLIGRAM, QD
     Route: 048
     Dates: start: 20160930, end: 20170224
  29. METFORMIN [Suspect]
     Active Substance: METFORMIN HYDROCHLORIDE
     Dosage: 850 MILLIGRAM, QD
     Route: 048
     Dates: start: 20180924
  30. METFORMIN [Suspect]
     Active Substance: METFORMIN HYDROCHLORIDE
     Dosage: 1700 MILLIGRAM, QD
     Route: 048
     Dates: start: 20170804
  31. METFORMIN [Suspect]
     Active Substance: METFORMIN HYDROCHLORIDE
     Dosage: 1700 MILLIGRAM, QD
     Route: 065
     Dates: start: 20170804
  32. METFORMIN [Suspect]
     Active Substance: METFORMIN HYDROCHLORIDE
     Dosage: 1700 MILLIGRAM, QD
     Route: 048
     Dates: start: 20170224
  33. FUROSEMIDE [Suspect]
     Active Substance: FUROSEMIDE
     Indication: Hypertension
     Dosage: 40 MILLIGRAM,UNK
     Route: 065
     Dates: start: 20170516
  34. FUROSEMIDE [Suspect]
     Active Substance: FUROSEMIDE
     Dosage: 50 MILLIGRAM
     Route: 065
  35. FUROSEMIDE [Suspect]
     Active Substance: FUROSEMIDE
     Dosage: UNK
     Route: 065
  36. FUROSEMIDE [Suspect]
     Active Substance: FUROSEMIDE
     Dosage: 50 MG, UNK
     Route: 065
  37. FUROSEMIDE [Suspect]
     Active Substance: FUROSEMIDE
     Dosage: 40 MG
     Route: 065
  38. FUROSEMIDE [Suspect]
     Active Substance: FUROSEMIDE
     Dosage: 40 MILLIGRAM, QD
     Route: 065
  39. INSULIN GLARGINE [Suspect]
     Active Substance: INSULIN GLARGINE
     Indication: Type 2 diabetes mellitus
     Dosage: UNK
     Route: 065
     Dates: start: 20161230, end: 20170224
  40. METHYLDOPA [Suspect]
     Active Substance: METHYLDOPA
     Indication: Hypertension
     Dosage: 1500 MILLIGRAM, QD
     Route: 048
     Dates: start: 20170720
  41. METHYLDOPA [Suspect]
     Active Substance: METHYLDOPA
     Dosage: 500 MILLIGRAM, QD
     Route: 065
     Dates: start: 20170620
  42. METHYLDOPA [Suspect]
     Active Substance: METHYLDOPA
     Dosage: 500 MILLIGRAM, QD
     Route: 065
     Dates: start: 20170720
  43. METHYLDOPA [Suspect]
     Active Substance: METHYLDOPA
     Dosage: 500 MILLIGRAM, QD
     Route: 048
  44. METHYLDOPA [Suspect]
     Active Substance: METHYLDOPA
     Dosage: 15000 MILLIGRAM, QD
     Route: 048
     Dates: start: 20170720
  45. METHYLDOPA [Suspect]
     Active Substance: METHYLDOPA
     Dosage: 1500 MILLIGRAM, QD
     Route: 048
  46. CHLORPROMAZINE HYDROCHLORIDE [Suspect]
     Active Substance: CHLORPROMAZINE HYDROCHLORIDE
     Indication: Bipolar I disorder
     Dosage: 0.5 DOSAGE FORM
     Route: 065
  47. CHLORPROMAZINE HYDROCHLORIDE [Suspect]
     Active Substance: CHLORPROMAZINE HYDROCHLORIDE
     Dosage: 25 MILLIGRAM, QD
     Route: 048
     Dates: start: 20170720
  48. CHLORPROMAZINE HYDROCHLORIDE [Suspect]
     Active Substance: CHLORPROMAZINE HYDROCHLORIDE
     Dosage: 1 DOSAGE FORM
     Route: 065
  49. CHLORPROMAZINE HYDROCHLORIDE [Suspect]
     Active Substance: CHLORPROMAZINE HYDROCHLORIDE
     Dosage: 25 MILLIGRAM, QD
     Route: 065
     Dates: start: 20170720
  50. CHLORPROMAZINE HYDROCHLORIDE [Suspect]
     Active Substance: CHLORPROMAZINE HYDROCHLORIDE
     Dosage: 25 MILLIGRAM, QD
     Route: 065
     Dates: start: 20170722
  51. NICARDIPINE HYDROCHLORIDE [Suspect]
     Active Substance: NICARDIPINE HYDROCHLORIDE
     Indication: Hypertension
     Dosage: 50 MG, QD
     Route: 065
     Dates: start: 20170313, end: 20170405
  52. NICARDIPINE HYDROCHLORIDE [Suspect]
     Active Substance: NICARDIPINE HYDROCHLORIDE
     Dosage: 50 MG, 50MG FORME LP X2/J
     Route: 065
  53. NICARDIPINE HYDROCHLORIDE [Suspect]
     Active Substance: NICARDIPINE HYDROCHLORIDE
     Dosage: 1 DOSAGE FORM
     Route: 065
     Dates: start: 20170313, end: 20180405
  54. NICARDIPINE HYDROCHLORIDE [Suspect]
     Active Substance: NICARDIPINE HYDROCHLORIDE
     Dosage: UNK
  55. NICARDIPINE HYDROCHLORIDE [Suspect]
     Active Substance: NICARDIPINE HYDROCHLORIDE
     Dosage: 100 UNK
     Route: 065
     Dates: start: 20170313, end: 20170405
  56. NICARDIPINE HYDROCHLORIDE [Suspect]
     Active Substance: NICARDIPINE HYDROCHLORIDE
     Dosage: 100 MILLIGRAM, QD
     Route: 065
     Dates: start: 20180405
  57. NICARDIPINE HYDROCHLORIDE [Suspect]
     Active Substance: NICARDIPINE HYDROCHLORIDE
     Dosage: 50 MILLIGRAM, BID
     Dates: start: 20170313, end: 20180405
  58. POTASSIUM CHLORIDE [Suspect]
     Active Substance: POTASSIUM CHLORIDE
     Indication: Hypokalaemia
     Dosage: 3600 MG, QD (1X/DAY (3600 MG, QD, 1200 MG, QD (1200 MG, QD (2 TO 3 TIMES PER DAY))
     Route: 065
     Dates: start: 20170804
  59. POTASSIUM CHLORIDE [Suspect]
     Active Substance: POTASSIUM CHLORIDE
     Dosage: 1200 MILLIGRAM, QD
     Route: 065
     Dates: start: 20170804
  60. POTASSIUM CHLORIDE [Suspect]
     Active Substance: POTASSIUM CHLORIDE
     Dosage: UNK
     Route: 065
     Dates: start: 20170804
  61. POTASSIUM CHLORIDE [Suspect]
     Active Substance: POTASSIUM CHLORIDE
     Dosage: 1200 MILLIGRAM
     Route: 065
  62. FERROUS SULFATE [Suspect]
     Active Substance: FERROUS SULFATE
     Indication: Normochromic normocytic anaemia
     Dosage: 1 DOSAGE FORM, QD
     Route: 065
     Dates: start: 20170313
  63. FERROUS SULFATE [Suspect]
     Active Substance: FERROUS SULFATE
     Dosage: 1 DOSAGE FORM
     Route: 065
     Dates: start: 20170914
  64. FERROUS SULFATE [Suspect]
     Active Substance: FERROUS SULFATE
     Dosage: 1 DOSAGE FORM, QD
     Route: 065
     Dates: start: 20170914
  65. AMITRIPTYLINE HYDROCHLORIDE [Suspect]
     Active Substance: AMITRIPTYLINE HYDROCHLORIDE
     Indication: Diabetic neuropathy
     Dosage: 2 DOSAGE FORM, QD
     Route: 065
     Dates: start: 20160930
  66. AMITRIPTYLINE HYDROCHLORIDE [Suspect]
     Active Substance: AMITRIPTYLINE HYDROCHLORIDE
     Dosage: UNK
     Route: 065
  67. AMITRIPTYLINE HYDROCHLORIDE [Suspect]
     Active Substance: AMITRIPTYLINE HYDROCHLORIDE
     Dosage: 2 DOSAGE FORM, QD
     Route: 065
     Dates: start: 20170914
  68. POLYETHYLENE GLYCOL 4000 [Suspect]
     Active Substance: POLYETHYLENE GLYCOL 4000
     Indication: Constipation
     Dosage: 1 DOSAGE FORM, QD
     Route: 065
     Dates: start: 20160930, end: 20170405
  69. POLYETHYLENE GLYCOL 4000 [Suspect]
     Active Substance: POLYETHYLENE GLYCOL 4000
     Indication: Normochromic normocytic anaemia
     Dosage: 1 DOSAGE FORM, QD
     Route: 065
     Dates: start: 20170405
  70. POLYETHYLENE GLYCOL 4000 [Suspect]
     Active Substance: POLYETHYLENE GLYCOL 4000
     Dosage: 1 DOSAGE FORM, QD
     Dates: start: 20170313
  71. POLYETHYLENE GLYCOL 4000 [Suspect]
     Active Substance: POLYETHYLENE GLYCOL 4000
     Dosage: 1 DOSAGE FORM, QD
     Route: 065
     Dates: start: 20170224
  72. POLYETHYLENE GLYCOL 4000 [Suspect]
     Active Substance: POLYETHYLENE GLYCOL 4000
     Dosage: 120 MILLIGRAM, QD
     Route: 065
     Dates: start: 20160930, end: 20170224
  73. POLYETHYLENE GLYCOL 4000 [Suspect]
     Active Substance: POLYETHYLENE GLYCOL 4000
     Dosage: 1 DOSAGE FORM, UNK
     Dates: start: 20160930, end: 20170224
  74. POLYETHYLENE GLYCOL 4000 [Suspect]
     Active Substance: POLYETHYLENE GLYCOL 4000
     Dosage: 1 DOSAGE FORM, QD
     Route: 065
     Dates: start: 20160930
  75. POLYETHYLENE GLYCOL 4000 [Suspect]
     Active Substance: POLYETHYLENE GLYCOL 4000
     Dosage: 1 DOSAGE FORM, UNK
     Dates: start: 20170224
  76. NICARDIPINE HYDROCHLORIDE [Suspect]
     Active Substance: NICARDIPINE HYDROCHLORIDE
     Indication: Hypertension
     Dosage: 50MG FORME LP X2/J
     Route: 065
     Dates: start: 20170313, end: 20180405
  77. NICARDIPINE HYDROCHLORIDE [Suspect]
     Active Substance: NICARDIPINE HYDROCHLORIDE
     Dosage: 100 MILLIGRAM, QD
     Route: 064
     Dates: start: 20180405
  78. NICARDIPINE HYDROCHLORIDE [Suspect]
     Active Substance: NICARDIPINE HYDROCHLORIDE
     Dosage: 1 DOSAGE FORM
     Route: 065
     Dates: start: 20170313, end: 20180405
  79. NICARDIPINE HYDROCHLORIDE [Suspect]
     Active Substance: NICARDIPINE HYDROCHLORIDE
     Dosage: 50 MILLIGRAM
     Route: 065
     Dates: start: 20170313, end: 20170405
  80. NICARDIPINE HYDROCHLORIDE [Suspect]
     Active Substance: NICARDIPINE HYDROCHLORIDE
     Dosage: 50 MG, UNK
     Route: 065
     Dates: start: 20180405
  81. LEUCOVORIN [Suspect]
     Active Substance: LEUCOVORIN
     Indication: Normochromic normocytic anaemia
     Dosage: 5 MILLIGRAM, QD
     Route: 065
     Dates: start: 20170224, end: 20170313
  82. LEUCOVORIN [Suspect]
     Active Substance: LEUCOVORIN
     Dosage: 5 MG, QD
     Route: 065
     Dates: start: 20170313
  83. LEUCOVORIN [Suspect]
     Active Substance: LEUCOVORIN
     Dosage: 5 MILLIGRAM, QD
     Route: 065
     Dates: start: 20170224
  84. HUMALOG [Suspect]
     Active Substance: INSULIN LISPRO
     Indication: Type 2 diabetes mellitus
     Dosage: 21 MICROGRAM/SQ. METER, QD
     Route: 065
     Dates: start: 20170224, end: 20170224
  85. HUMALOG [Suspect]
     Active Substance: INSULIN LISPRO
     Dosage: 7 MICROGRAM/SQ. METER, QD
     Route: 065
     Dates: start: 20170224
  86. HUMALOG [Suspect]
     Active Substance: INSULIN LISPRO
     Dosage: 1 DOSAGE FORM, QD
     Route: 065
     Dates: start: 20170224
  87. HUMALOG [Suspect]
     Active Substance: INSULIN LISPRO
     Dosage: 21 MICROGRAM/SQ. METER, QD
     Route: 065
     Dates: start: 20170224
  88. HUMALOG [Suspect]
     Active Substance: INSULIN LISPRO
     Dosage: UNK
     Route: 065
  89. HUMALOG [Suspect]
     Active Substance: INSULIN LISPRO
     Dosage: 21 MICROGRAM/SQ. METER, QD
     Route: 065
     Dates: start: 20170914
  90. LANTUS [Suspect]
     Active Substance: INSULIN GLARGINE
     Indication: Type 2 diabetes mellitus
     Dosage: 200 MG, UNK
     Route: 065
  91. LANTUS [Suspect]
     Active Substance: INSULIN GLARGINE
     Dosage: 20 INTERNATIONAL UNIT, QD
     Route: 065
     Dates: start: 20170224, end: 20170914
  92. LANTUS [Suspect]
     Active Substance: INSULIN GLARGINE
     Dosage: 20 INTERNATIONAL UNIT, QD
     Route: 065
     Dates: start: 20170914
  93. LANTUS [Suspect]
     Active Substance: INSULIN GLARGINE
     Dosage: 20 INTERNATIONAL UNIT, QD
     Route: 048
     Dates: start: 20170224, end: 20170914
  94. LANTUS [Suspect]
     Active Substance: INSULIN GLARGINE
     Dosage: 20 MILLIGRAM, QD
     Dates: start: 20170724
  95. NICOPATCH [Suspect]
     Active Substance: NICOTINE
     Indication: Ex-tobacco user
     Dosage: 7 MILLIGRAM, QD
     Route: 065
     Dates: start: 20170224, end: 20170516
  96. NICOPATCH [Suspect]
     Active Substance: NICOTINE
     Indication: Smoking cessation therapy
     Dosage: 7 MILLIGRAM, QD
     Route: 065
     Dates: start: 20170516
  97. NICOPATCH [Suspect]
     Active Substance: NICOTINE
     Dosage: 7 MILLIGRAM, QD
     Route: 065
  98. NICOPATCH [Suspect]
     Active Substance: NICOTINE
     Dosage: 7 MILLIGRAM, QD
     Route: 065
     Dates: start: 20170914
  99. LABETALOL HYDROCHLORIDE [Suspect]
     Active Substance: LABETALOL HYDROCHLORIDE
     Indication: Hypertension
     Dosage: 80 MG, QD
     Route: 065
     Dates: start: 20170516, end: 20170914
  100. LABETALOL HYDROCHLORIDE [Suspect]
     Active Substance: LABETALOL HYDROCHLORIDE
     Dosage: 80 MG, QD
     Route: 065
     Dates: start: 20170516
  101. LABETALOL HYDROCHLORIDE [Suspect]
     Active Substance: LABETALOL HYDROCHLORIDE
     Dosage: 80 MG, QD
     Route: 065
     Dates: start: 20170914
  102. LABETALOL HYDROCHLORIDE [Suspect]
     Active Substance: LABETALOL HYDROCHLORIDE
     Dosage: 1 DOSAGE FORM
     Route: 065
     Dates: start: 20170313, end: 20180405
  103. LABETALOL HYDROCHLORIDE [Suspect]
     Active Substance: LABETALOL HYDROCHLORIDE
     Dosage: 100 MILLIGRAM, QD
     Dates: start: 20180405
  104. LEVEMIR [Suspect]
     Active Substance: INSULIN DETEMIR
     Indication: Type 2 diabetes mellitus
     Dosage: 10 INTERNATIONAL UNIT, QD
     Route: 065
     Dates: start: 20160930, end: 20170224
  105. LEVEMIR [Suspect]
     Active Substance: INSULIN DETEMIR
     Dosage: 10 INTERNATIONAL UNIT, QD
     Route: 065
     Dates: start: 20170224
  106. INSULIN LISPRO [Suspect]
     Active Substance: INSULIN LISPRO
     Indication: Type 2 diabetes mellitus
     Dosage: 21 MICROGRAM/SQ. METER, QD
     Route: 065
     Dates: start: 20170224, end: 20170224
  107. INSULIN LISPRO [Suspect]
     Active Substance: INSULIN LISPRO
     Dosage: 7 UG/M2, QD
     Route: 065
     Dates: start: 20170224
  108. INSULIN LISPRO [Suspect]
     Active Substance: INSULIN LISPRO
     Dosage: 21 MICROGRAM/SQ. METER, QD
     Route: 065
  109. POTASSIUM CHLORIDE [Suspect]
     Active Substance: POTASSIUM CHLORIDE
     Indication: Hypokalaemia
     Dosage: 3600 MILLIGRAM, QD
     Route: 065
     Dates: start: 20170804
  110. POTASSIUM CHLORIDE [Suspect]
     Active Substance: POTASSIUM CHLORIDE
     Dosage: 1200 MILLIGRAM, QD
     Route: 065
     Dates: start: 20170804
  111. POTASSIUM CHLORIDE [Suspect]
     Active Substance: POTASSIUM CHLORIDE
     Dosage: 1200 MILLIGRAM
     Route: 065
  112. FERROUS SULFATE [Suspect]
     Active Substance: FERROUS SULFATE
     Indication: Normochromic normocytic anaemia
     Dosage: 1 DOSAGE FORM, QD
     Route: 065
     Dates: start: 20170313
  113. FERROUS SULFATE [Suspect]
     Active Substance: FERROUS SULFATE
     Dosage: 1 DOSAGE FORM, QD
     Route: 065
     Dates: start: 20170914
  114. AMITRIPTYLINE HYDROCHLORIDE [Suspect]
     Active Substance: AMITRIPTYLINE HYDROCHLORIDE
     Indication: Diabetic neuropathy
     Dosage: 2 DOSAGE FORM, QD
     Route: 065
     Dates: start: 20160930
  115. CHLORPROMAZINE HYDROCHLORIDE [Suspect]
     Active Substance: CHLORPROMAZINE HYDROCHLORIDE
     Indication: Bipolar I disorder
     Dosage: 25 MILLIGRAM, QD
     Route: 048
     Dates: start: 20170720
  116. CHLORPROMAZINE HYDROCHLORIDE [Suspect]
     Active Substance: CHLORPROMAZINE HYDROCHLORIDE
     Dosage: 25 MILLIGRAM, QD
     Route: 065
     Dates: start: 20170722
  117. FOLIC ACID [Suspect]
     Active Substance: FOLIC ACID
     Indication: Normochromic normocytic anaemia
     Dosage: 5 MILLIGRAM, QD
     Route: 065
     Dates: start: 20170313
  118. FOLIC ACID [Suspect]
     Active Substance: FOLIC ACID
     Dosage: 5 MG, QD
     Route: 065
     Dates: start: 20170224, end: 20170313
  119. FOLIC ACID [Suspect]
     Active Substance: FOLIC ACID
     Dosage: 5 MILLIGRAM, QD
     Dates: start: 20170224, end: 20171014
  120. FOLIC ACID [Suspect]
     Active Substance: FOLIC ACID
     Dosage: 5 MILLIGRAM, QD
     Route: 065
     Dates: start: 20170914
  121. AMOXICILLIN SODIUM [Suspect]
     Active Substance: AMOXICILLIN SODIUM
     Indication: Product used for unknown indication
     Dosage: 3 GRAM, QD
     Route: 048
     Dates: start: 20170804, end: 20170811
  122. PROPRANOLOL HYDROCHLORIDE [Suspect]
     Active Substance: PROPRANOLOL HYDROCHLORIDE
     Indication: Hypertension
     Dosage: 80 MG, DRUG INTERVAL DOSAGE OF 1 DAY
     Route: 065
     Dates: start: 20170516
  123. PROPRANOLOL HYDROCHLORIDE [Suspect]
     Active Substance: PROPRANOLOL HYDROCHLORIDE
     Dosage: 80 MILLIGRAM
     Route: 065
     Dates: start: 20170516
  124. INSULIN PORK\INSULIN PURIFIED PORK [Suspect]
     Active Substance: INSULIN PORK\INSULIN PURIFIED PORK
     Indication: Type 2 diabetes mellitus
     Dosage: UNK
     Route: 065
     Dates: start: 20161230, end: 20170224
  125. LASIX [Suspect]
     Active Substance: FUROSEMIDE
     Indication: Hypertension
     Dosage: 50 MG, UNK
     Route: 065
     Dates: start: 20170516
  126. LASIX [Suspect]
     Active Substance: FUROSEMIDE
     Dosage: 40 MILLIGRAM, QD
     Route: 065
     Dates: start: 20170516, end: 20170914
  127. LASIX [Suspect]
     Active Substance: FUROSEMIDE
     Dosage: 50 MILLIGRAM, QD
     Route: 065
  128. NICARDIPINE [Suspect]
     Active Substance: NICARDIPINE
     Indication: Hypertension
     Dosage: 50 MG, UNK,50MG FORME LP X2/J
     Route: 065
  129. NICARDIPINE [Suspect]
     Active Substance: NICARDIPINE
     Dosage: UNK
     Route: 065
  130. NICARDIPINE [Suspect]
     Active Substance: NICARDIPINE
     Dosage: 1 DOSAGE FORM
     Route: 065
     Dates: start: 20170313, end: 20180405
  131. NICARDIPINE [Suspect]
     Active Substance: NICARDIPINE
     Dosage: 100 MILLIGRAM, QD
     Dates: start: 20170405
  132. NICARDIPINE [Suspect]
     Active Substance: NICARDIPINE
     Dosage: 50 MG, UNK
     Route: 065
     Dates: start: 20170405
  133. NICARDIPINE [Suspect]
     Active Substance: NICARDIPINE
     Dosage: 50 MG, UNK
     Route: 065
     Dates: start: 20170914
  134. INSULIN NOS [Suspect]
     Active Substance: INSULIN NOS
     Indication: Type 2 diabetes mellitus
     Dosage: UNK
     Route: 065
     Dates: start: 20161230, end: 20170224
  135. INSULIN NOS [Suspect]
     Active Substance: INSULIN NOS
     Dosage: UNK
     Route: 065
     Dates: start: 20160930, end: 20180224
  136. INSULIN NOS [Suspect]
     Active Substance: INSULIN NOS
     Dosage: UNK
     Route: 065
     Dates: start: 20160930, end: 20170224
  137. INSULIN NOS [Suspect]
     Active Substance: INSULIN NOS
     Dosage: UNK
     Route: 065
  138. LANTUS [Suspect]
     Active Substance: INSULIN GLARGINE
     Indication: Type 2 diabetes mellitus
     Dosage: 20 MILLIGRAM, QD
     Route: 048
     Dates: start: 20170224
  139. NICOTINE [Suspect]
     Active Substance: NICOTINE
     Indication: Product used for unknown indication
     Dosage: 7 MILLIGRAM, QD
     Route: 065
     Dates: start: 20170914
  140. LEUCOVORIN CALCIUM [Suspect]
     Active Substance: LEUCOVORIN CALCIUM
     Indication: Normochromic normocytic anaemia
     Dosage: 90 MILLIGRAM
     Route: 064
  141. LEUCOVORIN CALCIUM [Suspect]
     Active Substance: LEUCOVORIN CALCIUM
     Dosage: 5 MILLIGRAM, QD
     Route: 064
     Dates: start: 20170224, end: 20170313

REACTIONS (5)
  - Premature delivery [Not Recovered/Not Resolved]
  - Low birth weight baby [Unknown]
  - Foetal disorder [Unknown]
  - Neutropenia [Not Recovered/Not Resolved]
  - Maternal exposure during pregnancy [Unknown]

NARRATIVE: CASE EVENT DATE: 20170804
